FAERS Safety Report 11206426 (Version 1)
Quarter: 2015Q2

REPORT INFORMATION
  Report Type: Spontaneous
  Country: US (occurrence: US)
  Receive Date: 20150622
  Receipt Date: 20150622
  Transmission Date: 20150821
  Serious: Yes (Death, Life-Threatening)
  Sender: FDA-Public Use
  Company Number: US-ROXANE LABORATORIES, INC.-2015-RO-01012RO

PATIENT
  Age: 55 Year
  Sex: Male

DRUGS (2)
  1. CYCLOPHOSPHAMIDE. [Suspect]
     Active Substance: CYCLOPHOSPHAMIDE
     Indication: RESPIRATORY FAILURE
  2. CYCLOPHOSPHAMIDE. [Suspect]
     Active Substance: CYCLOPHOSPHAMIDE
     Indication: RENAL IMPAIRMENT
     Route: 065

REACTIONS (5)
  - Shock [Unknown]
  - Pulmonary haemorrhage [Unknown]
  - Multi-organ failure [Unknown]
  - Strongyloidiasis [Fatal]
  - Gastrointestinal haemorrhage [Unknown]
